FAERS Safety Report 7288780-1 (Version None)
Quarter: 2011Q1

REPORT INFORMATION
  Report Type: 
  Country: None (occurrence: None)
  Receive Date: 20110211
  Receipt Date: 20110207
  Transmission Date: 20110831
  Serious: Yes (Other)
  Sender: FDA-Public Use
  Company Number: DE-PFIZER INC-2011009648

PATIENT
  Age: 68 Year
  Sex: Male

DRUGS (1)
  1. VIAGRA [Suspect]
     Dosage: 50 MG, EVERY 10 DAYS
     Dates: start: 20070101, end: 20101001

REACTIONS (4)
  - EYE IRRITATION [None]
  - VISION BLURRED [None]
  - HYPOACUSIS [None]
  - VISUAL ACUITY REDUCED [None]
